FAERS Safety Report 7978187-3 (Version None)
Quarter: 2011Q4

REPORT INFORMATION
  Report Type: 
  Country: None (occurrence: None)
  Receive Date: 20111214
  Receipt Date: 20111206
  Transmission Date: 20120403
  Serious: Yes (Life-Threatening, Other)
  Sender: FDA-Public Use
  Company Number: NL-AMGEN-NLDSP2011064315

PATIENT
  Age: 63 Year
  Sex: Male
  Weight: 95 kg

DRUGS (5)
  1. METHOTREXATE [Concomitant]
     Indication: MUSCULOSKELETAL PAIN
     Dosage: 2.5 MG, UNK
     Route: 048
     Dates: start: 20090101, end: 20110519
  2. METHOTREXATE [Concomitant]
     Dosage: UNK
     Dates: start: 20111201
  3. PREDNISOLONE [Concomitant]
     Indication: MUSCULOSKELETAL PAIN
     Dosage: 5 MG, UNK
     Dates: start: 20100501, end: 20110519
  4. ENBREL [Suspect]
     Indication: PRODUCT USED FOR UNKNOWN INDICATION
     Dosage: UNK
     Dates: start: 20110120, end: 20110519
  5. PREDNISOLONE [Concomitant]
     Dosage: UNK
     Dates: start: 20111201

REACTIONS (2)
  - MYOCARDIAL INFARCTION [None]
  - MUSCULOSKELETAL PAIN [None]
